FAERS Safety Report 18643597 (Version 1)
Quarter: 2020Q4

REPORT INFORMATION
  Report Type: Spontaneous
  Country: US (occurrence: US)
  Receive Date: 20201221
  Receipt Date: 20201221
  Transmission Date: 20210114
  Serious: Yes (Other)
  Sender: FDA-Public Use
  Company Number: US-ROCHE-2737052

PATIENT
  Age: 73 Year
  Sex: Female

DRUGS (7)
  1. ESBRIET [Suspect]
     Active Substance: PIRFENIDONE
     Indication: IDIOPATHIC PULMONARY FIBROSIS
     Route: 048
     Dates: start: 20191107
  2. TRADJENTA [Concomitant]
     Active Substance: LINAGLIPTIN
  3. SPIRONOLACTONE. [Concomitant]
     Active Substance: SPIRONOLACTONE
  4. GLIPIZIDE. [Concomitant]
     Active Substance: GLIPIZIDE
  5. LOSARTAN. [Concomitant]
     Active Substance: LOSARTAN
  6. CARVEDILOL. [Concomitant]
     Active Substance: CARVEDILOL
  7. SIMVASTATIN. [Concomitant]
     Active Substance: SIMVASTATIN

REACTIONS (1)
  - Road traffic accident [Unknown]

NARRATIVE: CASE EVENT DATE: 202003
